APPROVED DRUG PRODUCT: VIRILON
Active Ingredient: METHYLTESTOSTERONE
Strength: 10MG
Dosage Form/Route: CAPSULE;ORAL
Application: A087750 | Product #001
Applicant: CHARTWELL STAR RX LLC
Approved: Nov 24, 1982 | RLD: No | RS: No | Type: DISCN